FAERS Safety Report 7779213-7 (Version None)
Quarter: 2011Q3

REPORT INFORMATION
  Report Type: 
  Country: None (occurrence: None)
  Receive Date: 20110926
  Receipt Date: 20110915
  Transmission Date: 20111222
  Serious: Yes (Other)
  Sender: FDA-Public Use
  Company Number: US-AMGEN-USASP2011047578

PATIENT
  Age: 50 Year
  Sex: Female

DRUGS (1)
  1. ENBREL [Suspect]
     Indication: PSORIASIS
     Dosage: 50 MG, QWK
     Dates: start: 20080922, end: 20101101

REACTIONS (7)
  - PAIN IN EXTREMITY [None]
  - FEELING HOT [None]
  - PUSTULAR PSORIASIS [None]
  - VISUAL IMPAIRMENT [None]
  - PARAESTHESIA [None]
  - PRURITUS [None]
  - THERAPEUTIC RESPONSE DECREASED [None]
